FAERS Safety Report 10921681 (Version 1)
Quarter: 2015Q1

REPORT INFORMATION
  Report Type: Spontaneous
  Country: US (occurrence: US)
  Receive Date: 20150317
  Receipt Date: 20150317
  Transmission Date: 20150721
  Serious: No
  Sender: FDA-Public Use
  Company Number: US-BAYER-2015-044727

PATIENT
  Age: 34 Year
  Sex: Male
  Weight: 101.59 kg

DRUGS (1)
  1. ALEVE [Suspect]
     Active Substance: NAPROXEN SODIUM
     Indication: TOOTHACHE
     Dosage: 4 DF, UNK
     Route: 048
     Dates: start: 20150314

REACTIONS (2)
  - Inappropriate schedule of drug administration [None]
  - Extra dose administered [None]

NARRATIVE: CASE EVENT DATE: 20150314
